FAERS Safety Report 13262903 (Version 2)
Quarter: 2017Q3

REPORT INFORMATION
  Report Type: Spontaneous
  Country: US (occurrence: US)
  Receive Date: 20170223
  Receipt Date: 20170707
  Transmission Date: 20171127
  Serious: No
  Sender: FDA-Public Use
  Company Number: US-JNJFOC-20161214859

PATIENT
  Sex: Female

DRUGS (3)
  1. INVEGA SUSTENNA [Suspect]
     Active Substance: PALIPERIDONE PALMITATE
     Indication: SCHIZOAFFECTIVE DISORDER DEPRESSIVE TYPE
     Route: 030
     Dates: start: 2016
  2. INVEGA SUSTENNA [Suspect]
     Active Substance: PALIPERIDONE PALMITATE
     Indication: SCHIZOAFFECTIVE DISORDER DEPRESSIVE TYPE
     Route: 030
  3. INVEGA [Concomitant]
     Active Substance: PALIPERIDONE
     Route: 048
     Dates: start: 2013

REACTIONS (5)
  - Drug ineffective [Unknown]
  - Drug effect incomplete [Unknown]
  - Psychotic disorder [Unknown]
  - Delusion [Unknown]
  - Paranoia [Unknown]
